FAERS Safety Report 4300973-1 (Version None)
Quarter: 2004Q1

REPORT INFORMATION
  Report Type: 
  Country: None (occurrence: None)
  Receive Date: 20040219
  Receipt Date: 20040212
  Transmission Date: 20041129
  Serious: Yes (Hospitalization)
  Sender: FDA-Public Use
  Company Number: 2003154348SE

PATIENT
  Sex: Male

DRUGS (2)
  1. SULFASALAZINE [Suspect]
     Indication: COLITIS ULCERATIVE
     Dosage: 500 MG,
     Dates: end: 20020401
  2. FOLIC ACID [Suspect]

REACTIONS (8)
  - ABORTION SPONTANEOUS [None]
  - AMNIOCENTESIS ABNORMAL [None]
  - APGAR SCORE LOW [None]
  - ASCITES [None]
  - CAESAREAN SECTION [None]
  - COMPLICATIONS OF MATERNAL EXPOSURE TO THERAPEUTIC DRUGS [None]
  - HEREDITARY HAEMOLYTIC ANAEMIA [None]
  - MATERNAL DRUGS AFFECTING FOETUS [None]
